FAERS Safety Report 9779603 (Version 1)
Quarter: 2013Q4

REPORT INFORMATION
  Report Type: Spontaneous
  Country: US (occurrence: US)
  Receive Date: 20131223
  Receipt Date: 20131223
  Transmission Date: 20140711
  Serious: No
  Sender: FDA-Public Use
  Company Number: US-PFIZER INC-2013366279

PATIENT
  Age: 80 Year
  Sex: Female
  Weight: 59.86 kg

DRUGS (2)
  1. NEURONTIN [Suspect]
     Indication: NEURALGIA
     Dosage: 300 MG, 2X/DAY
     Route: 048
     Dates: start: 20131217
  2. WARFARIN [Concomitant]
     Dosage: 3 MG, DAILY

REACTIONS (1)
  - Neck pain [Not Recovered/Not Resolved]
